FAERS Safety Report 6441742-6 (Version None)
Quarter: 2009Q4

REPORT INFORMATION
  Report Type: 
  Country: None (occurrence: None)
  Receive Date: 20091116
  Receipt Date: 20091104
  Transmission Date: 20100525
  Serious: Yes (Hospitalization)
  Sender: FDA-Public Use
  Company Number: US-PFIZER INC-2009292739

PATIENT
  Sex: Male
  Weight: 76.5 kg

DRUGS (10)
  1. SUNITINIB MALATE [Suspect]
     Dosage: 25 MG, 1X/DAY EVERY EVENING
     Route: 048
     Dates: end: 20091022
  2. SUNITINIB MALATE [Suspect]
     Dosage: UNK
  3. HYDROCHLOROTHIAZIDE [Concomitant]
     Dosage: 25 MG, 1X/DAY
  4. NEXIUM [Concomitant]
     Dosage: 40 MG, 1X/DAY
  5. ZOCOR [Concomitant]
     Dosage: 40 MG, 1X/DAY
  6. FLOMAX [Concomitant]
     Dosage: 0.4 MG, UNK
  7. STOOL SOFTENER [Concomitant]
     Dosage: UNK
  8. VITAMIN D3 [Concomitant]
     Dosage: EVERY DAY
  9. DECADRON [Concomitant]
     Dosage: 4 MG, 3X/DAY
  10. ADVAIR DISKUS 100/50 [Concomitant]
     Dosage: DAILY
     Route: 055

REACTIONS (6)
  - CEREBRAL HAEMORRHAGE [None]
  - LYMPHOPENIA [None]
  - NEUTROPENIA [None]
  - PNEUMONIA [None]
  - SEPSIS [None]
  - THROMBOCYTOPENIA [None]
